FAERS Safety Report 12077122 (Version 3)
Quarter: 2016Q2

REPORT INFORMATION
  Report Type: Spontaneous
  Country: GB (occurrence: GB)
  Receive Date: 20160215
  Receipt Date: 20160531
  Transmission Date: 20160815
  Serious: Yes (Other)
  Sender: FDA-Public Use
  Company Number: GB-009507513-1602GBR006550

PATIENT
  Age: 46 Year
  Sex: Female

DRUGS (10)
  1. ZOPICLONE [Concomitant]
     Active Substance: ZOPICLONE
  2. APREPITANT. [Suspect]
     Active Substance: APREPITANT
     Dosage: UNK
     Route: 048
  3. NEULASTA [Suspect]
     Active Substance: PEGFILGRASTIM
     Dosage: UNK
  4. LORAZEPAM. [Concomitant]
     Active Substance: LORAZEPAM
  5. EPIRUBICIN [Concomitant]
     Active Substance: EPIRUBICIN
  6. MOVICOL [Concomitant]
     Active Substance: POLYETHYLENE GLYCOL 3350\POTASSIUM CHLORIDE\SODIUM BICARBONATE\SODIUM CHLORIDE
  7. DOCETAXEL. [Suspect]
     Active Substance: DOCETAXEL
     Dosage: UNK, CYCLICAL
     Route: 041
     Dates: start: 20160205
  8. DEXAMETHASONE. [Concomitant]
     Active Substance: DEXAMETHASONE
     Dosage: 8 MG, TWICE A DAY
     Route: 048
     Dates: start: 20160204
  9. CYCLOPHOSPHAMIDE. [Concomitant]
     Active Substance: CYCLOPHOSPHAMIDE
  10. GRANISETRON [Concomitant]
     Active Substance: GRANISETRON

REACTIONS (8)
  - Insomnia [Unknown]
  - Dyspnoea [Unknown]
  - Alopecia [Unknown]
  - Erythema [Recovered/Resolved]
  - Neuropathy peripheral [Unknown]
  - Dyspnoea [Recovered/Resolved]
  - Chest discomfort [Recovered/Resolved]
  - Cough [Unknown]

NARRATIVE: CASE EVENT DATE: 20160205
